FAERS Safety Report 7108111-7 (Version None)
Quarter: 2010Q4

REPORT INFORMATION
  Report Type: 
  Country: None (occurrence: None)
  Receive Date: 20101117
  Receipt Date: 20101105
  Transmission Date: 20110411
  Serious: Yes (Hospitalization)
  Sender: FDA-Public Use
  Company Number: CA-ELI_LILLY_AND_COMPANY-CA201011001918

PATIENT
  Sex: Female

DRUGS (1)
  1. HUMALOG [Suspect]

REACTIONS (2)
  - CYSTITIS [None]
  - HOSPITALISATION [None]
